FAERS Safety Report 10364063 (Version 1)
Quarter: 2014Q3

REPORT INFORMATION
  Report Type: Spontaneous
  Country: UA (occurrence: UA)
  Receive Date: 20140806
  Receipt Date: 20140806
  Transmission Date: 20150326
  Serious: Yes (Other)
  Sender: FDA-Public Use
  Company Number: UA-ROCHE-1445621

PATIENT
  Sex: Male
  Weight: 87 kg

DRUGS (3)
  1. DEXAMETHASONE. [Concomitant]
     Active Substance: DEXAMETHASONE
     Indication: BRAIN OEDEMA
     Route: 065
  2. AVASTIN [Suspect]
     Active Substance: BEVACIZUMAB
     Indication: GLIOBLASTOMA
     Dosage: SECOND DOSAGE
     Route: 042
     Dates: start: 20140731
  3. AVASTIN [Suspect]
     Active Substance: BEVACIZUMAB
     Dosage: FIRST DOSAGE
     Route: 042

REACTIONS (6)
  - Asthenia [Unknown]
  - Hyperhidrosis [Unknown]
  - Lymphopenia [Unknown]
  - Neutrophilia [Unknown]
  - Pyrexia [Unknown]
  - Abdominal distension [Unknown]
